FAERS Safety Report 8423572-9 (Version None)
Quarter: 2012Q2

REPORT INFORMATION
  Report Type: 
  Country: None (occurrence: None)
  Receive Date: 20120608
  Receipt Date: 20120601
  Transmission Date: 20120825
  Serious: Yes (Other)
  Sender: FDA-Public Use
  Company Number: FR-B.I. PHARMACEUTICALS,INC./RIDGEFIELD-2012-EU-02988GD

PATIENT
  Age: 65 Year
  Sex: Female

DRUGS (6)
  1. ADRENALINATED LIDOCACAINE [Suspect]
     Indication: ANALGESIC THERAPY
  2. CLONIDINE [Suspect]
     Indication: NERVE BLOCK
  3. ROPIVACAINE HYDROCHLORIDE [Suspect]
     Indication: NERVE BLOCK
     Dosage: FRACTIONED INJECTION OF 10 ML (0.5%)
  4. MIDAZOLAM [Concomitant]
     Indication: SEDATIVE THERAPY
     Dosage: PATIENTS RECEIVED INJECTIONS OF 1-2 MG
  5. OPIOIDS [Concomitant]
     Indication: ANAESTHESIA PROCEDURE
  6. ROPIVACAINE HYDROCHLORIDE [Suspect]
     Indication: ANALGESIC THERAPY

REACTIONS (3)
  - HYPOAESTHESIA [None]
  - MOTOR DYSFUNCTION [None]
  - PERONEAL NERVE INJURY [None]
